FAERS Safety Report 17325472 (Version 1)
Quarter: 2020Q1

REPORT INFORMATION
  Report Type: Spontaneous
  Country: SK (occurrence: SK)
  Receive Date: 20200127
  Receipt Date: 20200127
  Transmission Date: 20200409
  Serious: Yes (Hospitalization, Other)
  Sender: FDA-Public Use
  Company Number: SK-MYLANLABS-2020M1008419

PATIENT
  Age: 39 Year
  Sex: Male
  Weight: 60 kg

DRUGS (6)
  1. THIAMIN                            /00056101/ [Concomitant]
     Dosage: UNK
  2. LEPONEX [Suspect]
     Active Substance: CLOZAPINE
     Dosage: 450 MILLIGRAM, QD (100MG: 2-1/2-2)
     Route: 048
     Dates: start: 2004
  3. SERTRALINE [Concomitant]
     Active Substance: SERTRALINE HYDROCHLORIDE
     Dosage: UNK
  4. LEPONEX [Suspect]
     Active Substance: CLOZAPINE
     Indication: SCHIZOPHRENIA
     Dosage: 550 MILLIGRAM
     Route: 048
  5. RIVOTRIL [Concomitant]
     Active Substance: CLONAZEPAM
     Dosage: UNK
  6. DIAZEPAM. [Concomitant]
     Active Substance: DIAZEPAM
     Dosage: UNK

REACTIONS (10)
  - Urinary retention [Unknown]
  - Prostatic pain [Unknown]
  - Pollakiuria [Unknown]
  - Dysphagia [Unknown]
  - Muscle spasms [Unknown]
  - Dysuria [Unknown]
  - Urinary incontinence [Unknown]
  - Nasal congestion [Unknown]
  - Proctalgia [Unknown]
  - Tachycardia [Unknown]

NARRATIVE: CASE EVENT DATE: 20191029
